FAERS Safety Report 20620885 (Version 1)
Quarter: 2022Q1

REPORT INFORMATION
  Report Type: Other
  Country: GB (occurrence: None)
  Receive Date: 20220322
  Receipt Date: 20220322
  Transmission Date: 20220423
  Serious: Yes (Other)
  Sender: FDA-Public Use
  Company Number: GB-Navinta LLC-000227

PATIENT
  Sex: Male

DRUGS (1)
  1. INDOMETHACIN [Suspect]
     Active Substance: INDOMETHACIN
     Indication: Headache

REACTIONS (4)
  - Upper gastrointestinal haemorrhage [Unknown]
  - Haemoglobin decreased [Unknown]
  - Duodenitis [Unknown]
  - Drug intolerance [Unknown]
